FAERS Safety Report 9637719 (Version 1)
Quarter: 2013Q4

REPORT INFORMATION
  Report Type: Spontaneous
  Country: FR (occurrence: None)
  Receive Date: 20131018
  Receipt Date: 20131018
  Transmission Date: 20140711
  Serious: Yes (Hospitalization)
  Sender: FDA-Public Use
  Company Number: 1904066

PATIENT
  Age: 72 Year
  Sex: Female

DRUGS (4)
  1. CARBOPLATIN [Suspect]
     Indication: OVARIAN CANCER
     Route: 041
     Dates: start: 20120229, end: 20120229
  2. CAELYX [Concomitant]
  3. METHYLPREDNISOLONE MARCK [Concomitant]
  4. ZOPHREN [Concomitant]

REACTIONS (4)
  - Pruritus [None]
  - Erythema [None]
  - Feeling hot [None]
  - Hypersensitivity [None]
